FAERS Safety Report 14521373 (Version 4)
Quarter: 2019Q1

REPORT INFORMATION
  Report Type: Report from Study
  Country: DE (occurrence: DE)
  Receive Date: 20180212
  Receipt Date: 20190102
  Transmission Date: 20190417
  Serious: Yes (Hospitalization)
  Sender: FDA-Public Use
  Company Number: DE-SA-2017SA137494

PATIENT
  Age: 33 Year
  Sex: Female
  Weight: 84 kg

DRUGS (12)
  1. INSULIN LISPRO [Suspect]
     Active Substance: INSULIN LISPRO
     Dosage: 40 IU,QD
     Route: 058
     Dates: start: 20170905
  2. HYDROCORTISONE. [Concomitant]
     Active Substance: HYDROCORTISONE
     Dosage: UNK UNK,UNK
     Route: 065
     Dates: start: 2007
  3. DHEA [Concomitant]
     Active Substance: PRASTERONE
     Dosage: UNK UNK,UNK
     Route: 065
     Dates: start: 2007
  4. INSULIN LISPRO [Suspect]
     Active Substance: INSULIN LISPRO
     Indication: TYPE 1 DIABETES MELLITUS
     Dosage: 30 IU,QD
     Route: 058
     Dates: start: 20141022
  5. INSULIN GLARGINE [Suspect]
     Active Substance: INSULIN GLARGINE
     Dosage: 15 U, QD
     Route: 051
     Dates: start: 20171130, end: 20180125
  6. INSUMAN BASAL [Suspect]
     Active Substance: INSULIN HUMAN
     Dosage: 38 IU,QD
     Route: 058
     Dates: start: 20170724
  7. FLUDROCORTISONE ACETATE. [Concomitant]
     Active Substance: FLUDROCORTISONE ACETATE
     Dosage: UNK UNK,UNK
     Route: 065
     Dates: start: 2007
  8. INSULIN GLARGINE [Suspect]
     Active Substance: INSULIN GLARGINE
     Indication: TYPE 1 DIABETES MELLITUS
     Dosage: 15 IU, QD
     Route: 051
     Dates: start: 20141210
  9. INSUMAN BASAL [Suspect]
     Active Substance: INSULIN HUMAN
     Dosage: 34 IU,QD
     Route: 058
     Dates: start: 20170407
  10. INSULIN LISPRO [Suspect]
     Active Substance: INSULIN LISPRO
     Dosage: 12 U, QD
     Route: 058
  11. FOLIC ACID. [Concomitant]
     Active Substance: FOLIC ACID
     Dosage: UNK UNK,UNK
     Route: 065
     Dates: start: 20170407
  12. INSULIN GLARGINE [Suspect]
     Active Substance: INSULIN GLARGINE
     Dosage: 10 U, QD
     Route: 051
     Dates: start: 20180130

REACTIONS (4)
  - Norovirus test positive [Recovered/Resolved]
  - Hyperglycaemia [Recovered/Resolved]
  - Exposure during pregnancy [Unknown]
  - Hypoglycaemia [Recovered/Resolved]

NARRATIVE: CASE EVENT DATE: 20170706
